FAERS Safety Report 23993852 (Version 1)
Quarter: 2024Q2

REPORT INFORMATION
  Report Type: Spontaneous
  Country: US (occurrence: None)
  Receive Date: 20240618
  Receipt Date: 20240618
  Transmission Date: 20240716
  Serious: No
  Sender: FDA-Public Use
  Company Number: None

PATIENT
  Age: 78 Year
  Sex: Female
  Weight: 76.2 kg

DRUGS (1)
  1. CIMZIA [Suspect]
     Active Substance: CERTOLIZUMAB PEGOL
     Indication: Rheumatoid arthritis
     Dosage: OTHER QUANTITY : 400MG (2 VIALS) ;?FREQUENCY : AS DIRECTED;?
     Route: 058
     Dates: start: 202110

REACTIONS (2)
  - Psoriatic arthropathy [None]
  - Haemorrhage [None]
